FAERS Safety Report 10593634 (Version 1)
Quarter: 2014Q4

REPORT INFORMATION
  Report Type: Spontaneous
  Country: US (occurrence: US)
  Receive Date: 20141119
  Receipt Date: 20141119
  Transmission Date: 20150529
  Serious: No
  Sender: FDA-Public Use
  Company Number: US-BIOMARINAP-US-2014-104048

PATIENT
  Sex: Female
  Weight: 81.63 kg

DRUGS (3)
  1. VIMIZIM [Suspect]
     Active Substance: ELOSULFASE ALFA
     Indication: MUCOPOLYSACCHARIDOSIS IV
     Dosage: UNK UNK, QW
     Route: 042
     Dates: start: 20140623
  2. MONTELUKAST                        /01362602/ [Concomitant]
     Indication: ASTHMA
     Dosage: 10 MG, QD
  3. IBUPROFEN. [Concomitant]
     Active Substance: IBUPROFEN
     Indication: PRODUCT USED FOR UNKNOWN INDICATION
     Dosage: 1800 MG, PRN

REACTIONS (2)
  - Rash [Recovered/Resolved]
  - Vomiting [Recovered/Resolved]
